FAERS Safety Report 5085682-6 (Version None)
Quarter: 2006Q3

REPORT INFORMATION
  Report Type: 
  Country: None (occurrence: None)
  Receive Date: 20060822
  Receipt Date: 20060809
  Transmission Date: 20061208
  Serious: Yes (Hospitalization)
  Sender: FDA-Public Use
  Company Number: US-JNJFOC-20060802574

PATIENT
  Sex: Male
  Weight: 86.18 kg

DRUGS (14)
  1. DURAGESIC-100 [Suspect]
     Route: 062
  2. DURAGESIC-100 [Suspect]
     Dosage: 50 MCG AND 100 MCG
     Route: 062
  3. DURAGESIC-100 [Suspect]
     Route: 062
  4. DURAGESIC-100 [Suspect]
     Indication: ARTHRITIS REACTIVE
     Route: 062
  5. DURAGESIC-100 [Suspect]
     Indication: PAIN
     Route: 062
  6. MYLAN FENTANYL TRANSDERMAL SYSTEM [Suspect]
     Indication: ARTHRITIS REACTIVE
     Route: 062
  7. PREDNISOLONE [Suspect]
     Indication: ARTHRITIS REACTIVE
     Route: 048
  8. OXYCODONE HCL [Concomitant]
     Indication: BREAKTHROUGH PAIN
     Route: 048
  9. RANITIDINE [Concomitant]
     Indication: UVEITIS
     Route: 048
  10. LISINOPRIL [Concomitant]
     Indication: HYPERTENSION
     Route: 048
  11. ZYRTEC [Concomitant]
     Indication: SEASONAL ALLERGY
     Route: 048
  12. LORAZEPAM [Concomitant]
     Route: 065
  13. PROVIGIL [Concomitant]
     Route: 065
  14. AVANDIA [Concomitant]
     Route: 065

REACTIONS (19)
  - ABDOMINAL PAIN LOWER [None]
  - ANXIETY [None]
  - APPLICATION SITE PUSTULES [None]
  - APPLICATION SITE REACTION [None]
  - ASTHENIA [None]
  - CONSTIPATION [None]
  - DIABETES MELLITUS [None]
  - DRUG INEFFECTIVE [None]
  - FALL [None]
  - FUNGAL INFECTION [None]
  - HYPOTENSION [None]
  - INSOMNIA [None]
  - LARGE INTESTINE PERFORATION [None]
  - NARCOLEPSY [None]
  - POSTOPERATIVE INFECTION [None]
  - SPINAL FRACTURE [None]
  - THORACIC VERTEBRAL FRACTURE [None]
  - URTICARIA [None]
  - UVEITIS [None]
